FAERS Safety Report 19825794 (Version 1)
Quarter: 2021Q3

REPORT INFORMATION
  Report Type: Report from Study
  Country: None (occurrence: US)
  Receive Date: 20210914
  Receipt Date: 20210914
  Transmission Date: 20211014
  Serious: Yes (Other)
  Sender: FDA-Public Use
  Company Number: US-ABBVIE-21K-163-4073222-00

PATIENT
  Sex: Male

DRUGS (3)
  1. COVID?19 VACCINE [Concomitant]
     Indication: COVID-19 IMMUNISATION
     Dosage: JOHNSON
     Route: 030
     Dates: start: 20210121, end: 20210121
  2. HUMIRA [Suspect]
     Active Substance: ADALIMUMAB
     Indication: ANKYLOSING SPONDYLITIS
     Route: 058
  3. COVID?19 VACCINE [Concomitant]
     Dosage: JOHNSON
     Route: 030
     Dates: start: 20210221, end: 20210221

REACTIONS (2)
  - Blood urine present [Unknown]
  - Renal mass [Recovering/Resolving]
